FAERS Safety Report 15958250 (Version 1)
Quarter: 2019Q1

REPORT INFORMATION
  Report Type: Spontaneous
  Country: US (occurrence: US)
  Receive Date: 20190213
  Receipt Date: 20190213
  Transmission Date: 20190417
  Serious: No
  Sender: FDA-Public Use
  Company Number: US-NEXGEN PHARMA, INC.-2062638

PATIENT
  Age: 34 Year
  Sex: Male

DRUGS (1)
  1. CHENODAL [Suspect]
     Active Substance: CHENODIOL
     Indication: XANTHOMATOSIS
     Route: 048
     Dates: start: 20160603

REACTIONS (8)
  - Vomiting [Unknown]
  - Diarrhoea [Recovering/Resolving]
  - Hepatic enzyme increased [Unknown]
  - Gait disturbance [None]
  - Abdominal pain [Unknown]
  - Muscular weakness [Unknown]
  - Blood pressure increased [Unknown]
  - Hyperhidrosis [Unknown]
